FAERS Safety Report 7737948-6 (Version None)
Quarter: 2011Q3

REPORT INFORMATION
  Report Type: 
  Country: None (occurrence: None)
  Receive Date: 20110908
  Receipt Date: 20110905
  Transmission Date: 20111222
  Serious: Yes (Death, Hospitalization, Other)
  Sender: FDA-Public Use
  Company Number: BR-ABBOTT-11P-020-0851670-00

PATIENT
  Sex: Male
  Weight: 85 kg

DRUGS (6)
  1. UNSPECIFIED MEDICINE [Concomitant]
     Indication: GASTRIC DISORDER
  2. PREDNISOLONE [Concomitant]
     Indication: PRODUCT USED FOR UNKNOWN INDICATION
  3. CALCIUM CARBONATE [Concomitant]
     Indication: PRODUCT USED FOR UNKNOWN INDICATION
  4. HUMIRA [Suspect]
     Indication: RHEUMATOID ARTHRITIS
     Route: 058
     Dates: start: 20110528, end: 20110827
  5. UNSPECIFIED MEDICINE [Concomitant]
     Indication: PROPHYLAXIS
  6. UNSPECIFIED MEDICINE [Concomitant]
     Indication: PAIN

REACTIONS (10)
  - DYSPNOEA [None]
  - RENAL FAILURE ACUTE [None]
  - SEPTIC SHOCK [None]
  - NASOPHARYNGITIS [None]
  - PYREXIA [None]
  - PRODUCTIVE COUGH [None]
  - RESPIRATORY FAILURE [None]
  - IMMUNODEFICIENCY [None]
  - PNEUMONIA BACTERIAL [None]
  - CONDITION AGGRAVATED [None]
